FAERS Safety Report 22217809 (Version 2)
Quarter: 2023Q2

REPORT INFORMATION
  Report Type: Spontaneous
  Country: US (occurrence: US)
  Receive Date: 20230417
  Receipt Date: 20230616
  Transmission Date: 20230722
  Serious: Yes (Hospitalization)
  Sender: FDA-Public Use
  Company Number: US-ORPHANEU-2020000867

PATIENT

DRUGS (2)
  1. CARBAGLU [Suspect]
     Active Substance: CARGLUMIC ACID
     Indication: Propionic acidaemia
     Dosage: 300 MILLIGRAM, TID
     Dates: start: 20200120, end: 2020
  2. CARBAGLU [Suspect]
     Active Substance: CARGLUMIC ACID
     Dosage: 600 MILLIGRAM, QID
     Dates: start: 202012

REACTIONS (11)
  - Gastrointestinal disorder [Not Recovered/Not Resolved]
  - Neonatal respiratory distress [Unknown]
  - Tachycardia [Unknown]
  - Lung disorder [Unknown]
  - Dehydration [Unknown]
  - Metabolic disorder [Unknown]
  - Decreased appetite [Unknown]
  - Hypophagia [Unknown]
  - Gastric pH increased [Unknown]
  - Poor feeding infant [Unknown]
  - Decreased appetite [Unknown]

NARRATIVE: CASE EVENT DATE: 20200219
